FAERS Safety Report 19464982 (Version 2)
Quarter: 2021Q2

REPORT INFORMATION
  Report Type: Spontaneous
  Country: ES (occurrence: ES)
  Receive Date: 20210626
  Receipt Date: 20210626
  Transmission Date: 20210717
  Serious: Yes (Hospitalization)
  Sender: FDA-Public Use
  Company Number: NVSC2021ES136881

PATIENT
  Age: 11 Year
  Sex: Female

DRUGS (2)
  1. METRONIDAZOLE. [Suspect]
     Active Substance: METRONIDAZOLE
     Indication: SINUSITIS
     Dosage: 500 MG, Q12H (500 MG/12 H) (1966A) (DATE OF LAST ADMINISTRATION: 14 FEB 2020)
     Route: 042
     Dates: start: 20200208
  2. MEROPENEM. [Suspect]
     Active Substance: MEROPENEM
     Indication: SINUSITIS
     Dosage: 1 G, Q8H (1G/8H) (7155A)
     Route: 042
     Dates: start: 20200214, end: 20200224

REACTIONS (1)
  - Drug reaction with eosinophilia and systemic symptoms [Recovered/Resolved]

NARRATIVE: CASE EVENT DATE: 20200222
